FAERS Safety Report 5010839-X (Version None)
Quarter: 2006Q2

REPORT INFORMATION
  Report Type: 
  Country: None (occurrence: None)
  Receive Date: 20060525
  Receipt Date: 20060519
  Transmission Date: 20061013
  Serious: Yes (Other)
  Sender: FDA-Public Use
  Company Number: US-GLAXOSMITHKLINE-A0606365A

PATIENT
  Age: 58 Year
  Sex: Female

DRUGS (4)
  1. ADVAIR DISKUS 100/50 [Suspect]
     Indication: ASTHMA
     Dosage: 1PUFF TWICE PER DAY
     Route: 055
     Dates: start: 20010101
  2. SINGULAIR [Concomitant]
  3. CLARITIN-D [Concomitant]
  4. VENTOLIN [Concomitant]

REACTIONS (6)
  - APHONIA [None]
  - BARRETT'S OESOPHAGUS [None]
  - CATARACT [None]
  - CHEST PAIN [None]
  - DYSPEPSIA [None]
  - OSTEOPOROSIS [None]
